FAERS Safety Report 9701337 (Version 1)
Quarter: 2013Q4

REPORT INFORMATION
  Report Type: Spontaneous
  Country: US (occurrence: US)
  Receive Date: 20131121
  Receipt Date: 20131121
  Transmission Date: 20140711
  Serious: No
  Sender: FDA-Public Use
  Company Number: US-GILEAD-2008-0016491

PATIENT
  Sex: Male
  Weight: 90.72 kg

DRUGS (12)
  1. LETAIRIS [Suspect]
     Indication: PULMONARY ARTERIAL HYPERTENSION
     Route: 048
     Dates: start: 20080501
  2. LASIX [Concomitant]
     Route: 048
  3. LISINOPRIL [Concomitant]
     Route: 048
  4. SPIRIVA [Concomitant]
     Route: 048
  5. LEXAPRO [Concomitant]
     Route: 048
  6. LEVOXYL [Concomitant]
     Route: 048
  7. NEXIUM [Concomitant]
     Route: 048
  8. BACLOFEN [Concomitant]
     Route: 048
  9. ASPIRIN EC [Concomitant]
     Route: 048
  10. DAILY MULTIVIT [Concomitant]
     Route: 048
  11. FISH OIL [Concomitant]
     Route: 048
  12. TYLENOL W/CODEINE #3 [Concomitant]
     Route: 048

REACTIONS (2)
  - Palpitations [Unknown]
  - Local swelling [Unknown]
